FAERS Safety Report 4358624-6 (Version None)
Quarter: 2004Q2

REPORT INFORMATION
  Report Type: 
  Country: None (occurrence: None)
  Receive Date: 20040514
  Receipt Date: 20040514
  Transmission Date: 20050107
  Serious: Yes (Death)
  Sender: FDA-Public Use
  Company Number: None

PATIENT
  Age: 81 Year
  Sex: Female
  Weight: 67.6 kg

DRUGS (5)
  1. RETEVASE [Suspect]
     Indication: ARTERIAL THROMBOSIS
     Dosage: 0.5 UNITS/ EVERY HOUR IV
     Route: 042
     Dates: start: 20040512, end: 20040513
  2. NITROGLYCERIN [Concomitant]
  3. TOPROL-XL [Concomitant]
  4. CARDIZEM [Concomitant]
  5. ASPIRIN [Concomitant]

REACTIONS (3)
  - BLOOD PRESSURE SYSTOLIC INCREASED [None]
  - CEREBRAL HAEMORRHAGE [None]
  - COMA [None]
